FAERS Safety Report 5353138-9 (Version None)
Quarter: 2007Q2

REPORT INFORMATION
  Report Type: 
  Country: None (occurrence: None)
  Receive Date: 20070607
  Receipt Date: 20070531
  Transmission Date: 20071010
  Serious: Yes (Hospitalization)
  Sender: FDA-Public Use
  Company Number: 2007-02609

PATIENT
  Age: 68 Year
  Sex: Female

DRUGS (2)
  1. DILTIAZEM [Suspect]
     Indication: HYPERTENSION
     Dosage: 60 MG, BID,
  2. CLONIDINE [Concomitant]

REACTIONS (2)
  - EOSINOPHILIA [None]
  - PLEURAL EFFUSION [None]
